FAERS Safety Report 7698785-4 (Version None)
Quarter: 2011Q3

REPORT INFORMATION
  Report Type: 
  Country: None (occurrence: None)
  Receive Date: 20110819
  Receipt Date: 20110816
  Transmission Date: 20111222
  Serious: Yes (Death)
  Sender: FDA-Public Use
  Company Number: US-GILEAD-2011-0042621

PATIENT
  Sex: Female
  Weight: 30.1 kg

DRUGS (16)
  1. REGLAN [Concomitant]
  2. BACTRIM DS [Concomitant]
  3. LETAIRIS [Suspect]
     Indication: PULMONARY ARTERIAL HYPERTENSION
     Route: 048
     Dates: start: 20100804, end: 20110803
  4. LETAIRIS [Suspect]
     Indication: INTERSTITIAL LUNG DISEASE
  5. WARFARIN SODIUM [Concomitant]
  6. TRIAMCINOLONE ACETONIDE [Concomitant]
     Indication: ECZEMA
  7. PREDNISONE [Concomitant]
  8. CLARITIN                           /00413701/ [Concomitant]
     Indication: HYPERSENSITIVITY
  9. POTASSIUM CHLORIDE [Concomitant]
  10. HYDROXYCHLOROQUINE [Concomitant]
  11. LETAIRIS [Suspect]
     Indication: PROTEIN C DEFICIENCY
  12. REVATIO [Concomitant]
  13. ALBUTEROL SULFATE [Concomitant]
     Indication: COUGH
  14. ALBUTEROL SULFATE [Concomitant]
     Indication: WHEEZING
  15. NASONEX [Concomitant]
  16. ALDACTAZIDE [Concomitant]

REACTIONS (1)
  - CARDIO-RESPIRATORY ARREST [None]
